FAERS Safety Report 25957015 (Version 1)
Quarter: 2025Q4

REPORT INFORMATION
  Report Type: Report from Study
  Country: CA (occurrence: CA)
  Receive Date: 20251024
  Receipt Date: 20251024
  Transmission Date: 20260117
  Serious: Yes (Other)
  Sender: LUNDBECK
  Company Number: CA-LUNDBECK-DKLU4020893

PATIENT
  Age: 34 Year
  Sex: Female

DRUGS (2)
  1. VYEPTI [Suspect]
     Active Substance: EPTINEZUMAB-JJMR
     Indication: Migraine
     Dosage: 100 MILLIGRAM
     Route: 041
     Dates: start: 20230629, end: 20240311
  2. VYEPTI [Suspect]
     Active Substance: EPTINEZUMAB-JJMR
     Dosage: 300 MILLIGRAM
     Route: 041
     Dates: start: 20240311

REACTIONS (4)
  - Nerve injury [Not Recovered/Not Resolved]
  - Wound [Not Recovered/Not Resolved]
  - Wound drainage [Not Recovered/Not Resolved]
  - Cyst removal [Not Recovered/Not Resolved]

NARRATIVE: CASE EVENT DATE: 20250904
